FAERS Safety Report 4970052-9 (Version None)
Quarter: 2006Q2

REPORT INFORMATION
  Report Type: 
  Country: None (occurrence: None)
  Receive Date: 20060406
  Receipt Date: 20060324
  Transmission Date: 20061013
  Serious: Yes (Death, Hospitalization)
  Sender: FDA-Public Use
  Company Number: 2006_000007

PATIENT
  Age: 54 Year
  Sex: Male

DRUGS (14)
  1. DEPOCYT [Suspect]
     Indication: LEUKAEMIA
     Dosage: 50 MG;INTH
     Route: 037
     Dates: end: 20060120
  2. DEPOCYT [Suspect]
     Indication: NERVOUS SYSTEM DISORDER
     Dosage: 50 MG;INTH
     Route: 037
     Dates: end: 20060120
  3. DEPOCYT [Suspect]
     Indication: PROPHYLAXIS
     Dosage: 50 MG;INTH
     Route: 037
     Dates: end: 20060120
  4. DEXAMETHASONE [Concomitant]
  5. METHOTREXATE [Concomitant]
  6. CYTARABINE [Concomitant]
  7. NEUPOGEN [Concomitant]
  8. NPH INSULIN [Concomitant]
  9. VANTIN [Concomitant]
  10. FLUCONAZOLE [Concomitant]
  11. VALTREX [Concomitant]
  12. DILAUDID [Concomitant]
  13. TOPROL-XL [Concomitant]
  14. VASOTEC [Concomitant]

REACTIONS (19)
  - ACUTE RESPIRATORY DISTRESS SYNDROME [None]
  - ASTHENIA [None]
  - COMA [None]
  - DIFFICULTY IN WALKING [None]
  - DYSPNOEA [None]
  - EYE ROLLING [None]
  - FALL [None]
  - HYPERGLYCAEMIA [None]
  - HYPOGLYCAEMIA [None]
  - HYPOXIA [None]
  - LETHARGY [None]
  - LOSS OF CONSCIOUSNESS [None]
  - PAIN IN EXTREMITY [None]
  - PARALYSIS FLACCID [None]
  - PYREXIA [None]
  - SOMNOLENCE [None]
  - THROMBOCYTOPENIA [None]
  - TREMOR [None]
  - URINARY INCONTINENCE [None]
